FAERS Safety Report 6919488-7 (Version None)
Quarter: 2010Q3

REPORT INFORMATION
  Report Type: 
  Country: None (occurrence: None)
  Receive Date: 20100811
  Receipt Date: 20100802
  Transmission Date: 20110219
  Serious: Yes (Hospitalization)
  Sender: FDA-Public Use
  Company Number: US-ASTRAZENECA-2010SE36213

PATIENT
  Age: 57 Year
  Sex: Female

DRUGS (5)
  1. CASODEX [Suspect]
     Route: 048
     Dates: start: 20100501, end: 20100601
  2. KAPIDEX [Suspect]
     Indication: PRODUCT USED FOR UNKNOWN INDICATION
     Route: 065
  3. XANAX [Concomitant]
     Indication: PRODUCT USED FOR UNKNOWN INDICATION
  4. MORPHINE [Concomitant]
     Indication: PRODUCT USED FOR UNKNOWN INDICATION
  5. DILANTIN [Concomitant]
     Indication: POST-TRAUMATIC EPILEPSY

REACTIONS (7)
  - ABDOMINAL PAIN [None]
  - BACK PAIN [None]
  - DRUG NAME CONFUSION [None]
  - DRUG PRESCRIBING ERROR [None]
  - GENERALISED OEDEMA [None]
  - NO ADVERSE EVENT [None]
  - WRONG DRUG ADMINISTERED [None]
